FAERS Safety Report 14978587 (Version 1)
Quarter: 2018Q2

REPORT INFORMATION
  Report Type: Spontaneous
  Country: FR (occurrence: FR)
  Receive Date: 20180606
  Receipt Date: 20180606
  Transmission Date: 20180711
  Serious: Yes (Other)
  Sender: FDA-Public Use
  Company Number: FR-ROCHE-2135386

PATIENT
  Age: 50 Year
  Sex: Male
  Weight: 94 kg

DRUGS (1)
  1. ROACTEMRA [Suspect]
     Active Substance: TOCILIZUMAB
     Indication: RHEUMATOID ARTHRITIS
     Route: 058
     Dates: start: 20180214, end: 20180227

REACTIONS (5)
  - Headache [Recovered/Resolved]
  - Gingival pain [Recovered/Resolved]
  - Rectal haemorrhage [Recovered/Resolved]
  - Toothache [Recovered/Resolved]
  - Gingival bleeding [Recovered/Resolved]

NARRATIVE: CASE EVENT DATE: 20180220
